FAERS Safety Report 14817063 (Version 5)
Quarter: 2021Q4

REPORT INFORMATION
  Report Type: Spontaneous
  Country: US (occurrence: US)
  Receive Date: 20180426
  Receipt Date: 20211004
  Transmission Date: 20220303
  Serious: No
  Sender: FDA-Public Use
  Company Number: US-PFIZER INC-2018165609

PATIENT
  Age: 59 Year
  Sex: Female
  Weight: 103 kg

DRUGS (7)
  1. SOMAVERT [Suspect]
     Active Substance: PEGVISOMANT
     Dosage: 20 MG, 1X/DAY
     Route: 058
  2. SOMAVERT [Suspect]
     Active Substance: PEGVISOMANT
     Dosage: 20 MG,(3 TIMES WEEKLY)
     Route: 058
  3. SOMAVERT [Suspect]
     Active Substance: PEGVISOMANT
     Dosage: 30 MG, DAILY
     Route: 058
     Dates: start: 20171108
  4. SOMAVERT [Suspect]
     Active Substance: PEGVISOMANT
     Dosage: 30 MG, 2X/WEEK(TWICE WEEKLY)
     Route: 058
     Dates: start: 201803
  5. BISOPROLOL FUMARATE\HYDROCHLOROTHIAZIDE [Concomitant]
     Active Substance: BISOPROLOL FUMARATE\HYDROCHLOROTHIAZIDE
     Indication: Hypertension
     Dosage: [BISOPROLOL FUMARATE 2.5MG]/[ HYDROCHLOROTHIAZIDE 6.25MG],TAKE IT IN MORNING WITH THE GLASS OF WATER
     Route: 048
  6. ATORVASTATIN [Concomitant]
     Active Substance: ATORVASTATIN
     Indication: Blood cholesterol increased
     Dosage: 20 MG, 1X/DAY
     Route: 048
  7. CABERGOLINE [Concomitant]
     Active Substance: CABERGOLINE
     Indication: Acromegaly
     Dosage: 0.5 MG/ONE AND HALF TABLETS TWO TIMES A WEEK

REACTIONS (7)
  - Injection site erythema [Recovered/Resolved]
  - Injection related reaction [Unknown]
  - Injection site hypersensitivity [Unknown]
  - Blood prolactin decreased [Unknown]
  - Insulin-like growth factor increased [Unknown]
  - Glycosylated haemoglobin increased [Unknown]
  - Product dose omission issue [Unknown]

NARRATIVE: CASE EVENT DATE: 20180403
